FAERS Safety Report 10907780 (Version 1)
Quarter: 2015Q1

REPORT INFORMATION
  Report Type: Spontaneous
  Country: IT (occurrence: None)
  Receive Date: 20150309
  Receipt Date: 20150309
  Transmission Date: 20150721
  Serious: Yes (Other)
  Sender: FDA-Public Use
  Company Number: 2015JUB00060

PATIENT

DRUGS (3)
  1. THYMOGLOBULIN (RABBIT ANTI-THYOCYTE GLOBULIN) [Concomitant]
  2. PREDNISONE (PREDNISONE) UNKNOWN [Suspect]
     Active Substance: PREDNISONE
     Indication: IMMUNOSUPPRESSION
  3. SANDIMMUNE (CYCLOSPORINE) [Concomitant]

REACTIONS (1)
  - Diabetes mellitus [None]
